FAERS Safety Report 25453932 (Version 3)
Quarter: 2025Q3

REPORT INFORMATION
  Report Type: Report from Study
  Country: US (occurrence: US)
  Receive Date: 20250619
  Receipt Date: 20250828
  Transmission Date: 20251021
  Serious: No
  Sender: ACADIA PHARMACEUTICALS
  Company Number: US-ACADIA PHARMACEUTICALS INC.-ACA-2025-TRF-007116

PATIENT
  Sex: Female
  Weight: 38.6 kg

DRUGS (3)
  1. DAYBUE [Suspect]
     Active Substance: TROFINETIDE
     Indication: Rett syndrome
     Dosage: 5 MILLILITER, BID
     Route: 048
     Dates: start: 202506
  2. DAYBUE [Suspect]
     Active Substance: TROFINETIDE
     Route: 048
  3. DAYBUE [Suspect]
     Active Substance: TROFINETIDE
     Dosage: 15 MILLILITER, BID (TITRATED DOSE)
     Route: 048

REACTIONS (4)
  - Salivary hypersecretion [Not Recovered/Not Resolved]
  - Bruxism [Not Recovered/Not Resolved]
  - Somnolence [Recovered/Resolved]
  - Underdose [Not Recovered/Not Resolved]
